FAERS Safety Report 9322665 (Version 1)
Quarter: 2013Q2

REPORT INFORMATION
  Report Type: Spontaneous
  Country: AU (occurrence: AU)
  Receive Date: 20130601
  Receipt Date: 20130601
  Transmission Date: 20140414
  Serious: Yes (Life-Threatening)
  Sender: FDA-Public Use
  Company Number: AU-BAXTER-2013BAX019667

PATIENT
  Sex: Female
  Weight: 80 kg

DRUGS (3)
  1. BAXTER 5% GLUCOSE 100ML INJECTION BP BAG AHB0087 AHB0094 [Suspect]
     Indication: MEDICATION DILUTION
     Route: 042
  2. LIPOSOMAL DOXORUBICIN [Suspect]
     Indication: CHEMOTHERAPY
     Route: 042
  3. LIPOSOMAL DOXORUBICIN [Suspect]
     Indication: BREAST CANCER METASTATIC

REACTIONS (1)
  - Anaphylactic reaction [Recovered/Resolved]
